FAERS Safety Report 4973829-9 (Version None)
Quarter: 2006Q2

REPORT INFORMATION
  Report Type: 
  Country: None (occurrence: None)
  Receive Date: 20060414
  Receipt Date: 20050622
  Transmission Date: 20061013
  Serious: Yes (Hospitalization, Other)
  Sender: FDA-Public Use
  Company Number: US-MERCK-0506USA03321

PATIENT
  Age: 52 Year
  Sex: Female
  Weight: 100 kg

DRUGS (8)
  1. VIOXX [Suspect]
     Indication: OSTEOARTHRITIS
     Route: 048
     Dates: start: 20030225, end: 20040701
  2. VIOXX [Suspect]
     Route: 048
     Dates: start: 19991020, end: 20030223
  3. INDERAL [Concomitant]
     Indication: CARDIAC DISORDER
     Route: 065
     Dates: start: 19990101
  4. ACCOLATE [Concomitant]
     Route: 065
  5. ULTRAM [Concomitant]
     Indication: ARTHRALGIA
     Route: 065
     Dates: start: 20020101
  6. HYDROCHLOROTHIAZIDE [Concomitant]
     Indication: HYPERTENSION
     Route: 065
     Dates: start: 19970101, end: 20050301
  7. ALLOPURINOL [Concomitant]
     Indication: ARTHRALGIA
     Route: 065
  8. RANITIDINE [Concomitant]
     Indication: DYSPEPSIA
     Route: 065

REACTIONS (22)
  - ARTHRALGIA [None]
  - ASTHMA [None]
  - BACK PAIN [None]
  - BLADDER DISORDER [None]
  - CARDIAC DISORDER [None]
  - CEREBROVASCULAR ACCIDENT [None]
  - CHEST PAIN [None]
  - CONTUSION [None]
  - DEPRESSION [None]
  - DRY EYE [None]
  - DYSPEPSIA [None]
  - DYSPNOEA [None]
  - GINGIVAL BLEEDING [None]
  - GOUT [None]
  - SCOLIOSIS [None]
  - SKIN HAEMORRHAGE [None]
  - SPINAL COLUMN STENOSIS [None]
  - SPINAL OSTEOARTHRITIS [None]
  - STOMACH DISCOMFORT [None]
  - SYSTEMIC LUPUS ERYTHEMATOSUS [None]
  - TRANSIENT ISCHAEMIC ATTACK [None]
  - TRICUSPID VALVE INCOMPETENCE [None]
